FAERS Safety Report 8551289-9 (Version None)
Quarter: 2012Q3

REPORT INFORMATION
  Report Type: 
  Country: None (occurrence: None)
  Receive Date: 20120730
  Receipt Date: 20111214
  Transmission Date: 20120928
  Serious: No
  Sender: FDA-Public Use
  Company Number: US-ALLERGAN-1116398US

PATIENT
  Age: 58 Year
  Sex: Female

DRUGS (1)
  1. LATISSE [Suspect]
     Indication: PRODUCT USED FOR UNKNOWN INDICATION
     Dosage: UNK

REACTIONS (6)
  - EYELIDS PRURITUS [None]
  - ERYTHEMA OF EYELID [None]
  - EYE SWELLING [None]
  - EYELID OEDEMA [None]
  - ERYTHEMA [None]
  - PRURITUS [None]
